FAERS Safety Report 12205090 (Version 2)
Quarter: 2016Q2

REPORT INFORMATION
  Report Type: Spontaneous
  Country: US (occurrence: US)
  Receive Date: 20160323
  Receipt Date: 20160520
  Transmission Date: 20160815
  Serious: Yes (Other)
  Sender: FDA-Public Use
  Company Number: US-TEVA-644815USA

PATIENT
  Age: 54 Year
  Sex: Female

DRUGS (3)
  1. NUCENTRA [Concomitant]
     Indication: NECK PAIN
  2. ZECUITY [Suspect]
     Active Substance: SUMATRIPTAN SUCCINATE
     Route: 062
     Dates: start: 201604, end: 201604
  3. ZECUITY [Suspect]
     Active Substance: SUMATRIPTAN SUCCINATE
     Indication: MIGRAINE
     Route: 062
     Dates: start: 20160310, end: 20160310

REACTIONS (10)
  - Application site dryness [Recovered/Resolved]
  - Application site discolouration [Recovered/Resolved]
  - Application site erythema [Recovered/Resolved]
  - Application site pruritus [Recovered/Resolved]
  - Application site burn [Recovered/Resolved]
  - Device leakage [Unknown]
  - Sunburn [Recovered/Resolved]
  - Drug effect incomplete [Unknown]
  - Migraine [Unknown]
  - Application site scab [Recovered/Resolved]

NARRATIVE: CASE EVENT DATE: 20160310
